FAERS Safety Report 15624892 (Version 2)
Quarter: 2018Q4

REPORT INFORMATION
  Report Type: Report from Study
  Country: CA (occurrence: CA)
  Receive Date: 20181116
  Receipt Date: 20181224
  Transmission Date: 20190205
  Serious: Yes (Hospitalization, Other)
  Sender: FDA-Public Use
  Company Number: PHHY2015CA089572

PATIENT
  Age: 63 Year
  Sex: Female
  Weight: 95 kg

DRUGS (20)
  1. XOLAIR [Suspect]
     Active Substance: OMALIZUMAB
     Dosage: UNK
     Route: 058
     Dates: start: 20160414
  2. SYMBICORT [Concomitant]
     Active Substance: BUDESONIDE\FORMOTEROL FUMARATE DIHYDRATE
     Indication: ASTHMA
     Dosage: 1 DF, BID
     Route: 055
     Dates: start: 2014
  3. PREDNISONE. [Suspect]
     Active Substance: PREDNISONE
     Indication: ASTHMA
     Dosage: 1 DF, QD
     Route: 048
     Dates: start: 2015
  4. PREDNISONE. [Suspect]
     Active Substance: PREDNISONE
     Indication: BRONCHOSPASM
     Dosage: 50 MG, (FOR 5 DAYS)
     Route: 065
     Dates: start: 20160212
  5. PREDNISONE. [Suspect]
     Active Substance: PREDNISONE
     Indication: DYSPNOEA
     Dosage: UNK
     Route: 065
     Dates: start: 20160502
  6. XOLAIR [Suspect]
     Active Substance: OMALIZUMAB
     Dosage: 375 MG, BIW
     Route: 058
     Dates: start: 20181010
  7. SALBUTAMOL [Concomitant]
     Active Substance: ALBUTEROL
     Indication: PRODUCT USED FOR UNKNOWN INDICATION
     Route: 065
  8. XOLAIR [Suspect]
     Active Substance: OMALIZUMAB
     Indication: ASTHMA
     Dosage: 150 MG, EVERY 4 WEEKS
     Route: 058
     Dates: start: 20150722
  9. XOLAIR [Suspect]
     Active Substance: OMALIZUMAB
     Dosage: 275 MG, BIW
     Route: 058
     Dates: start: 20150819
  10. XOLAIR [Suspect]
     Active Substance: OMALIZUMAB
     Dosage: UNK
     Route: 058
     Dates: start: 20160331
  11. XOLAIR [Suspect]
     Active Substance: OMALIZUMAB
     Dosage: 375 MG, BIW
     Route: 058
     Dates: start: 20160512, end: 20160512
  12. PREDNISONE. [Suspect]
     Active Substance: PREDNISONE
     Indication: WHEEZING
     Dosage: 30 MG, QD
     Route: 065
  13. IMURAN [Concomitant]
     Active Substance: AZATHIOPRINE
     Indication: PRODUCT USED FOR UNKNOWN INDICATION
     Route: 065
  14. VENTOLIN [Concomitant]
     Active Substance: ALBUTEROL SULFATE
     Indication: DYSPNOEA
     Dosage: 2 DF, PRN
     Route: 065
     Dates: start: 2016
  15. TUDORZA GENUAIR [Concomitant]
     Active Substance: ACLIDINIUM BROMIDE
     Indication: WHEEZING
  16. XOLAIR [Suspect]
     Active Substance: OMALIZUMAB
     Dosage: UNK
     Route: 058
     Dates: start: 20160428
  17. CLONAZEPAM. [Suspect]
     Active Substance: CLONAZEPAM
     Indication: SEIZURE
     Dosage: 1 DF, BID
     Route: 048
     Dates: start: 2011
  18. VENTOLIN [Concomitant]
     Active Substance: ALBUTEROL SULFATE
     Indication: ASTHMA
     Dosage: 2 DF (1-2 PUFFS), Q2H
     Route: 055
  19. SYMBICORT [Concomitant]
     Active Substance: BUDESONIDE\FORMOTEROL FUMARATE DIHYDRATE
     Dosage: DOSE INCREASED (SIX TIMES A DAY)
     Route: 065
  20. TUDORZA GENUAIR [Concomitant]
     Active Substance: ACLIDINIUM BROMIDE
     Indication: ASTHMA
     Dosage: 1 DF, BID
     Route: 055
     Dates: start: 201704

REACTIONS (29)
  - Use of accessory respiratory muscles [Unknown]
  - Cold sweat [Unknown]
  - Forced expiratory volume decreased [Not Recovered/Not Resolved]
  - Wheezing [Unknown]
  - Nausea [Recovered/Resolved]
  - Drug ineffective [Unknown]
  - Asthma [Unknown]
  - Pyrexia [Unknown]
  - Secretion discharge [Unknown]
  - Influenza like illness [Unknown]
  - Bronchospasm [Unknown]
  - Malaise [Unknown]
  - Temperature intolerance [Recovered/Resolved]
  - Blood pressure systolic increased [Unknown]
  - Eosinophil count increased [Unknown]
  - Pruritus [Unknown]
  - Breast cancer female [Unknown]
  - Cough [Unknown]
  - Insomnia [Unknown]
  - Conjunctivitis allergic [Unknown]
  - Pneumonia [Unknown]
  - Dyspnoea [Unknown]
  - Nasopharyngitis [Unknown]
  - Rhinitis [Unknown]
  - Sinusitis [Unknown]
  - Pain in extremity [Unknown]
  - Choking [Unknown]
  - Eczema [Not Recovered/Not Resolved]
  - Neutrophil count increased [Unknown]

NARRATIVE: CASE EVENT DATE: 2015
